FAERS Safety Report 6255290-X (Version None)
Quarter: 2009Q3

REPORT INFORMATION
  Report Type: 
  Country: None (occurrence: None)
  Receive Date: 20090702
  Receipt Date: 20090619
  Transmission Date: 20100115
  Serious: Yes (Other)
  Sender: FDA-Public Use
  Company Number: US-JNJFOC-20090606965

PATIENT
  Age: 32 Year
  Sex: Female

DRUGS (5)
  1. INTELENCE [Suspect]
     Indication: HIV INFECTION
  2. DETROL LA [Concomitant]
  3. TRUVADA [Concomitant]
  4. JANUVIA [Concomitant]
  5. OMEPRAZOLE [Concomitant]

REACTIONS (1)
  - RASH [None]
